FAERS Safety Report 8186679-X (Version None)
Quarter: 2012Q1

REPORT INFORMATION
  Report Type: 
  Country: None (occurrence: None)
  Receive Date: 20120213
  Receipt Date: 20110223
  Transmission Date: 20120608
  Serious: Yes (Hospitalization, Other)
  Sender: FDA-Public Use
  Company Number: E2020-08638-SPO-US

PATIENT
  Age: 67 Year
  Sex: Female

DRUGS (5)
  1. SINEMET [Concomitant]
  2. AZILECT [Concomitant]
  3. MIRAPEX [Concomitant]
  4. ARICEPT [Suspect]
     Indication: PARKINSON'S DISEASE
     Dosage: 5 MG, 1 IN 1 D, ORAL ; 5 MG, 1 IN 1 D, ORAL
     Route: 048
     Dates: start: 20110217, end: 20110223
  5. ARICEPT [Suspect]
     Indication: PARKINSON'S DISEASE
     Dosage: 5 MG, 1 IN 1 D, ORAL ; 5 MG, 1 IN 1 D, ORAL
     Route: 048
     Dates: start: 20110228, end: 20110301

REACTIONS (5)
  - VERTIGO [None]
  - VOMITING [None]
  - CONVULSION [None]
  - NAUSEA [None]
  - ATRIOVENTRICULAR BLOCK [None]
